FAERS Safety Report 4294684-9 (Version None)
Quarter: 2004Q1

REPORT INFORMATION
  Report Type: 
  Country: None (occurrence: None)
  Receive Date: 20040213
  Receipt Date: 20031113
  Transmission Date: 20041129
  Serious: Yes (Hospitalization, Other)
  Sender: FDA-Public Use
  Company Number: PHNU2003DE04033

PATIENT
  Age: 64 Year
  Sex: Male
  Weight: 85 kg

DRUGS (1)
  1. ZOMETA [Suspect]
     Indication: PROSTATE CANCER METASTATIC
     Dosage: 4 MG, QMO
     Dates: start: 20030501, end: 20030901

REACTIONS (7)
  - BILATERAL HYDRONEPHROSIS [None]
  - BLOOD CREATININE INCREASED [None]
  - CALCULUS URETERIC [None]
  - NEPHROLITHIASIS [None]
  - POSTRENAL FAILURE [None]
  - RENAL STONE REMOVAL [None]
  - URETERIC OBSTRUCTION [None]
